FAERS Safety Report 24173047 (Version 1)
Quarter: 2024Q3

REPORT INFORMATION
  Report Type: Report from Study
  Country: US (occurrence: US)
  Receive Date: 20240805
  Receipt Date: 20240805
  Transmission Date: 20241017
  Serious: Yes (Death, Other)
  Sender: ABBVIE
  Company Number: US-ABBVIE-5864476

PATIENT
  Age: 81 Year
  Sex: Male

DRUGS (1)
  1. SYNTHROID [Suspect]
     Active Substance: LEVOTHYROXINE SODIUM
     Indication: Product used for unknown indication
     Dosage: TAKE 1 TABLET EVERY MORNING
     Route: 048
     Dates: start: 202206, end: 202407

REACTIONS (2)
  - Vascular graft [Fatal]
  - Post procedural complication [Fatal]

NARRATIVE: CASE EVENT DATE: 20240725
